FAERS Safety Report 12809872 (Version 1)
Quarter: 2016Q4

REPORT INFORMATION
  Report Type: Report from Study
  Country: CA (occurrence: CA)
  Receive Date: 20161005
  Receipt Date: 20161005
  Transmission Date: 20170207
  Serious: Yes (Death, Other)
  Sender: FDA-Public Use
  Company Number: CA-ROCHE-1833183

PATIENT
  Age: 48 Year
  Sex: Male
  Weight: 60.1 kg

DRUGS (26)
  1. BEVACIZUMAB [Suspect]
     Active Substance: BEVACIZUMAB
     Dosage: COURSE 5
     Route: 065
     Dates: start: 20121109
  2. BEVACIZUMAB [Suspect]
     Active Substance: BEVACIZUMAB
     Dosage: COURSE 8
     Route: 065
     Dates: start: 20130123
  3. IXABEPILONE [Suspect]
     Active Substance: IXABEPILONE
     Dosage: COURSE 6
     Route: 065
     Dates: start: 20121205
  4. BEVACIZUMAB [Suspect]
     Active Substance: BEVACIZUMAB
     Indication: CLEAR CELL RENAL CELL CARCINOMA
     Dosage: COURSE 1
     Route: 065
     Dates: start: 20120815
  5. BEVACIZUMAB [Suspect]
     Active Substance: BEVACIZUMAB
     Dosage: COURSE 3
     Route: 065
     Dates: start: 20120926
  6. BEVACIZUMAB [Suspect]
     Active Substance: BEVACIZUMAB
     Dosage: COURSE 7
     Route: 065
     Dates: start: 20121228
  7. IXABEPILONE [Suspect]
     Active Substance: IXABEPILONE
     Dosage: COURSE 2
     Route: 065
     Dates: start: 20120905
  8. IXABEPILONE [Suspect]
     Active Substance: IXABEPILONE
     Dosage: COURSE 5
     Route: 065
     Dates: start: 20121109
  9. IXABEPILONE [Suspect]
     Active Substance: IXABEPILONE
     Dosage: COURSE 8
     Route: 065
     Dates: start: 20130123
  10. IXABEPILONE [Suspect]
     Active Substance: IXABEPILONE
     Dosage: COURSE 9
     Route: 065
     Dates: start: 20130123
  11. IXABEPILONE [Suspect]
     Active Substance: IXABEPILONE
     Dosage: COURSE 13
     Route: 065
     Dates: start: 20130612
  12. BEVACIZUMAB [Suspect]
     Active Substance: BEVACIZUMAB
     Dosage: COURSE 6
     Route: 065
     Dates: start: 20121205
  13. BEVACIZUMAB [Suspect]
     Active Substance: BEVACIZUMAB
     Dosage: COURSE 13
     Route: 065
     Dates: start: 20130612
  14. IXABEPILONE [Suspect]
     Active Substance: IXABEPILONE
     Dosage: COURSE 4
     Route: 065
     Dates: start: 20121017
  15. BEVACIZUMAB [Suspect]
     Active Substance: BEVACIZUMAB
     Dosage: COURSE 2
     Route: 065
     Dates: start: 20120905
  16. IXABEPILONE [Suspect]
     Active Substance: IXABEPILONE
     Dosage: COURSE 10
     Route: 065
     Dates: start: 20130322
  17. BEVACIZUMAB [Suspect]
     Active Substance: BEVACIZUMAB
     Dosage: COURSE 10
     Route: 065
     Dates: start: 20130322
  18. IXABEPILONE [Suspect]
     Active Substance: IXABEPILONE
     Dosage: COURSE 3
     Route: 065
     Dates: start: 20120926
  19. IXABEPILONE [Suspect]
     Active Substance: IXABEPILONE
     Dosage: COURSE 11
     Route: 065
     Dates: start: 20130419
  20. BEVACIZUMAB [Suspect]
     Active Substance: BEVACIZUMAB
     Dosage: COURSE 4
     Route: 065
     Dates: start: 20121017
  21. BEVACIZUMAB [Suspect]
     Active Substance: BEVACIZUMAB
     Dosage: COURSE 11
     Route: 065
     Dates: start: 20130419
  22. IXABEPILONE [Suspect]
     Active Substance: IXABEPILONE
     Indication: CLEAR CELL RENAL CELL CARCINOMA
     Dosage: COURSE 1
     Route: 065
     Dates: start: 20120815
  23. IXABEPILONE [Suspect]
     Active Substance: IXABEPILONE
     Dosage: COURSE 7
     Route: 065
     Dates: start: 20121228
  24. IXABEPILONE [Suspect]
     Active Substance: IXABEPILONE
     Dosage: COURSE 12
     Route: 065
     Dates: start: 20130515
  25. BEVACIZUMAB [Suspect]
     Active Substance: BEVACIZUMAB
     Dosage: COURSE 9
     Route: 065
     Dates: start: 20130123
  26. BEVACIZUMAB [Suspect]
     Active Substance: BEVACIZUMAB
     Dosage: COURSE 12
     Route: 065
     Dates: start: 20130515

REACTIONS (8)
  - Lung infection [Unknown]
  - Anaemia [Unknown]
  - Fatigue [Unknown]
  - Lymphocyte count decreased [Unknown]
  - Nausea [Unknown]
  - Neutrophil count decreased [Unknown]
  - Cardiac arrest [Fatal]
  - White blood cell count decreased [Unknown]
